FAERS Safety Report 7095779-7 (Version None)
Quarter: 2010Q4

REPORT INFORMATION
  Report Type: 
  Country: None (occurrence: None)
  Receive Date: 20101111
  Receipt Date: 20101029
  Transmission Date: 20110411
  Serious: Yes (Other)
  Sender: FDA-Public Use
  Company Number: PHHY2010ES73596

PATIENT
  Age: 76 Year
  Sex: Male

DRUGS (4)
  1. ZOMETA [Suspect]
     Indication: PROSTATE CANCER
     Dosage: 4 MG EVERY 4 WEEKS
     Route: 042
     Dates: start: 20090301
  2. ZOLADEX [Concomitant]
  3. TRANGOREX [Concomitant]
  4. DACORTIN [Concomitant]

REACTIONS (5)
  - BONE DISORDER [None]
  - BONE LESION [None]
  - INFECTION [None]
  - ORAL PAIN [None]
  - OSTEONECROSIS OF JAW [None]
